FAERS Safety Report 11784503 (Version 2)
Quarter: 2015Q4

REPORT INFORMATION
  Report Type: Spontaneous
  Country: CA (occurrence: CA)
  Receive Date: 20151129
  Receipt Date: 20151222
  Transmission Date: 20160305
  Serious: Yes (Other)
  Sender: FDA-Public Use
  Company Number: CA-ROCHE-1666156

PATIENT
  Sex: Male

DRUGS (4)
  1. VALTREX [Concomitant]
     Active Substance: VALACYCLOVIR HYDROCHLORIDE
  2. XOLAIR [Suspect]
     Active Substance: OMALIZUMAB
     Indication: ASTHMA
     Route: 058
     Dates: start: 20150623
  3. SYMBICORT [Concomitant]
     Active Substance: BUDESONIDE\FORMOTEROL FUMARATE DIHYDRATE
  4. SPIRIVA [Concomitant]
     Active Substance: TIOTROPIUM BROMIDE MONOHYDRATE

REACTIONS (9)
  - Pulmonary pain [Recovering/Resolving]
  - Hyperphagia [Unknown]
  - Inguinal hernia [Unknown]
  - Exercise tolerance increased [Unknown]
  - Asthma [Recovering/Resolving]
  - Hiatus hernia [Unknown]
  - Rales [Unknown]
  - Weight increased [Unknown]
  - Cough [Unknown]
